FAERS Safety Report 25393012 (Version 1)
Quarter: 2025Q2

REPORT INFORMATION
  Report Type: Spontaneous
  Country: US (occurrence: US)
  Receive Date: 20250604
  Receipt Date: 20250604
  Transmission Date: 20250716
  Serious: Yes (Hospitalization)
  Sender: NOVITIUM PHARMA
  Company Number: US-NOVITIUMPHARMA-2025USNVP01267

PATIENT
  Age: 59 Year
  Sex: Male

DRUGS (8)
  1. FLUPHENAZINE [Suspect]
     Active Substance: FLUPHENAZINE
     Indication: Catatonia
     Route: 048
  2. BENZTROPINE [Concomitant]
     Active Substance: BENZTROPINE
     Indication: Parkinsonism
  3. LORAZEPAM [Concomitant]
     Active Substance: LORAZEPAM
     Indication: Catatonia
  4. LORAZEPAM [Concomitant]
     Active Substance: LORAZEPAM
     Indication: Schizophrenia
  5. MEMANTINE [Concomitant]
     Active Substance: MEMANTINE
     Indication: Catatonia
  6. MEMANTINE [Concomitant]
     Active Substance: MEMANTINE
     Indication: Schizophrenia
  7. VALPROIC ACID [Concomitant]
     Active Substance: VALPROIC ACID
     Indication: Catatonia
  8. VALPROIC ACID [Concomitant]
     Active Substance: VALPROIC ACID
     Indication: Schizophrenia

REACTIONS (2)
  - Drug intolerance [Unknown]
  - Condition aggravated [Unknown]
